FAERS Safety Report 19959375 (Version 1)
Quarter: 2021Q4

REPORT INFORMATION
  Report Type: Spontaneous
  Country: CN (occurrence: CN)
  Receive Date: 20211015
  Receipt Date: 20211015
  Transmission Date: 20220303
  Serious: Yes (Hospitalization, Other)
  Sender: FDA-Public Use
  Company Number: CN-GLAXOSMITHKLINE-CNCH2021APC071077

PATIENT
  Age: 25 Year
  Sex: Male
  Weight: 55 kg

DRUGS (1)
  1. LAMISIL [Suspect]
     Active Substance: TERBINAFINE HYDROCHLORIDE
     Indication: Scrotal inflammation
     Dosage: 0.01 G, QD
     Dates: start: 20210927, end: 20210928

REACTIONS (9)
  - Angioedema [Recovered/Resolved]
  - Hypersensitivity [Recovered/Resolved]
  - Scrotal pain [Recovered/Resolved]
  - Scrotal erythema [Recovered/Resolved]
  - Scrotal swelling [Recovered/Resolved]
  - Penile swelling [Recovered/Resolved]
  - Pruritus genital [Recovered/Resolved]
  - Tenderness [Recovered/Resolved]
  - Genital discharge [Recovered/Resolved]

NARRATIVE: CASE EVENT DATE: 20210928
